FAERS Safety Report 9788665 (Version 1)
Quarter: 2013Q4

REPORT INFORMATION
  Report Type: Spontaneous
  Country: TW (occurrence: TW)
  Receive Date: 20131230
  Receipt Date: 20131230
  Transmission Date: 20140711
  Serious: Yes (Hospitalization)
  Sender: FDA-Public Use
  Company Number: TW-JNJFOC-20131212803

PATIENT
  Age: 37 Year
  Sex: Male

DRUGS (2)
  1. INVEGA [Suspect]
     Indication: SCHIZOPHRENIA
     Route: 048
  2. ZOLPIDEM [Suspect]
     Indication: INSOMNIA
     Route: 065

REACTIONS (10)
  - Inappropriate antidiuretic hormone secretion [Unknown]
  - Polydipsia [Recovered/Resolved]
  - Hyponatraemia [Recovered/Resolved]
  - Weight increased [Recovered/Resolved]
  - Dysarthria [Unknown]
  - Hypokalaemia [Unknown]
  - Scrotal swelling [Recovered/Resolved]
  - Nausea [Unknown]
  - Malaise [Unknown]
  - Somnolence [Unknown]
